FAERS Safety Report 9647041 (Version 3)
Quarter: 2014Q2

REPORT INFORMATION
  Report Type: Spontaneous
  Country: US (occurrence: US)
  Receive Date: 20131027
  Receipt Date: 20140418
  Transmission Date: 20141212
  Serious: Yes (Death)
  Sender: FDA-Public Use
  Company Number: US-NAPPMUNDI-USA-2012-0097376

PATIENT
  Age: 36 Year
  Sex: Female
  Weight: 80.73 kg

DRUGS (10)
  1. OXYCONTIN (NDA 22-272) [Suspect]
     Indication: BACK PAIN
     Dosage: 40 MG, BID
     Dates: start: 201208
  2. TOPAMAX [Suspect]
     Dosage: 100 MG, TID
     Dates: start: 201208
  3. SEROQUEL [Concomitant]
     Indication: ANXIETY
     Dosage: 50 MG, TID
  4. SEROQUEL [Concomitant]
     Indication: BIPOLAR DISORDER
  5. CLONAZEPAM [Concomitant]
     Indication: ANXIETY
     Dosage: 1 MG, TID
     Dates: start: 2011
  6. CYMBALTA [Concomitant]
     Indication: ANXIETY
     Dosage: 60 MG, BID
  7. PANTOPRAZOLE [Concomitant]
     Indication: GASTROOESOPHAGEAL REFLUX DISEASE
     Dosage: 40 MG, DAILY
     Dates: start: 201208
  8. ZOLPIDEM [Concomitant]
     Dosage: 10 MG, HS
  9. SOMA [Concomitant]
     Indication: MUSCLE SPASMS
     Dosage: 350 MG, PRN
     Dates: start: 20120606
  10. DULCOLAX                           /00064401/ [Concomitant]
     Indication: CONSTIPATION
     Dosage: UNK
     Dates: start: 2012

REACTIONS (1)
  - Accidental overdose [Fatal]
